FAERS Safety Report 4543274-9 (Version None)
Quarter: 2004Q4

REPORT INFORMATION
  Report Type: 
  Country: None (occurrence: None)
  Receive Date: 20041229
  Receipt Date: 20041215
  Transmission Date: 20050328
  Serious: Yes (Death)
  Sender: FDA-Public Use
  Company Number: ZONI002081

PATIENT
  Age: 68 Year
  Sex: Male

DRUGS (1)
  1. EXCEGRAN (ZONISAMIDE) [Suspect]
     Indication: DRUG ERUPTION
     Dosage: 200 MG, ORAL
     Route: 048
     Dates: end: 20041025

REACTIONS (5)
  - DIALYSIS [None]
  - DRUG HYPERSENSITIVITY [None]
  - PHARYNGOLARYNGEAL PAIN [None]
  - PYREXIA [None]
  - RENAL FAILURE [None]
